FAERS Safety Report 15021370 (Version 2)
Quarter: 2018Q2

REPORT INFORMATION
  Report Type: Spontaneous
  Country: US (occurrence: US)
  Receive Date: 20180618
  Receipt Date: 20180628
  Transmission Date: 20180711
  Serious: No
  Sender: FDA-Public Use
  Company Number: US-APOTEX-2018AP006223

PATIENT
  Age: 50 Year
  Sex: Female
  Weight: 58.96 kg

DRUGS (1)
  1. BUDESONIDE NASAL SPRAY [Suspect]
     Active Substance: BUDESONIDE
     Indication: SEASONAL ALLERGY
     Dosage: UNK UNK, BID
     Route: 065
     Dates: start: 20171217, end: 20180114

REACTIONS (2)
  - Drug ineffective [Unknown]
  - Headache [Unknown]

NARRATIVE: CASE EVENT DATE: 20180124
